FAERS Safety Report 14786841 (Version 2)
Quarter: 2021Q2

REPORT INFORMATION
  Report Type: Report from Study
  Country: US (occurrence: US)
  Receive Date: 20180420
  Receipt Date: 20210409
  Transmission Date: 20210716
  Serious: Yes (Death)
  Sender: FDA-Public Use
  Company Number: US-CELGENEUS-163-21880-12022135

PATIENT
  Age: 71 Year
  Sex: Male

DRUGS (3)
  1. DEXAMETHASONE. [Suspect]
     Active Substance: DEXAMETHASONE
     Indication: PLASMA CELL MYELOMA
     Dosage: 12 MILLIGRAM
     Route: 048
     Dates: start: 20100520
  2. REVLIMID [Suspect]
     Active Substance: LENALIDOMIDE
     Indication: PLASMA CELL MYELOMA
     Dosage: 25 MILLIGRAM
     Route: 048
     Dates: start: 20100520, end: 20100903
  3. DEXAMETHASONE. [Suspect]
     Active Substance: DEXAMETHASONE
     Dosage: 20 MILLIGRAM
     Route: 041
     Dates: end: 20100903

REACTIONS (1)
  - Cardiac failure [Fatal]

NARRATIVE: CASE EVENT DATE: 20100903
